FAERS Safety Report 4319393-9 (Version None)
Quarter: 2004Q1

REPORT INFORMATION
  Report Type: 
  Country: None (occurrence: None)
  Receive Date: 20040316
  Receipt Date: 20040302
  Transmission Date: 20041129
  Serious: Yes (Death)
  Sender: FDA-Public Use
  Company Number: 2003-BP-06392PF

PATIENT
  Age: 70 Year
  Sex: Male

DRUGS (2)
  1. SPIRIVA [Suspect]
     Dosage: 18 MCG (18 MCG, QD) IH
     Route: 055
  2. OXYGEN (OXYGEN) [Concomitant]

REACTIONS (1)
  - RESPIRATORY ARREST [None]
